FAERS Safety Report 18930833 (Version 1)
Quarter: 2021Q1

REPORT INFORMATION
  Report Type: Spontaneous
  Country: US (occurrence: US)
  Receive Date: 20210224
  Receipt Date: 20210224
  Transmission Date: 20210420
  Serious: No
  Sender: FDA-Public Use
  Company Number: US-BIOCODEX SA-2021000042

PATIENT
  Sex: Male
  Weight: 39.5 kg

DRUGS (11)
  1. DIACOMIT [Suspect]
     Active Substance: STIRIPENTOL
     Indication: EPILEPSY
     Dosage: 750 MG, QD
     Dates: start: 20200116
  2. DEPAKOTE [Concomitant]
     Active Substance: DIVALPROEX SODIUM
  3. ONFI [Concomitant]
     Active Substance: CLOBAZAM
  4. KEPPRA [Concomitant]
     Active Substance: LEVETIRACETAM
  5. DIASTAT                            /00017001/ [Concomitant]
  6. VALPROIC ACID. [Concomitant]
     Active Substance: VALPROIC ACID
  7. TOPIRAMATE. [Concomitant]
     Active Substance: TOPIRAMATE
  8. DIACOMIT [Suspect]
     Active Substance: STIRIPENTOL
     Indication: STATUS EPILEPTICUS
  9. CLOBAZAM. [Concomitant]
     Active Substance: CLOBAZAM
  10. COENZYME Q10 [Concomitant]
     Active Substance: DIETARY SUPPLEMENT\UBIDECARENONE
  11. LEVOCARNITINE. [Concomitant]
     Active Substance: LEVOCARNITINE

REACTIONS (3)
  - Product use in unapproved indication [Unknown]
  - No adverse event [Unknown]
  - Product dose omission issue [Unknown]
